FAERS Safety Report 24292207 (Version 1)
Quarter: 2024Q3

REPORT INFORMATION
  Report Type: Spontaneous
  Country: US (occurrence: None)
  Receive Date: 20240906
  Receipt Date: 20240906
  Transmission Date: 20241016
  Serious: No
  Sender: DOMPE FARMACEUTICI
  Company Number: US-FARMAPROD-202307-2222

PATIENT
  Sex: Female
  Weight: 106.59 kg

DRUGS (4)
  1. OXERVATE [Suspect]
     Active Substance: CENEGERMIN-BKBJ
     Indication: Neurotrophic keratopathy
     Route: 047
     Dates: start: 20230720
  2. CEQUA [Concomitant]
     Active Substance: CYCLOSPORINE
  3. TIMOLOL MALEATE [Concomitant]
     Active Substance: TIMOLOL MALEATE
  4. LOTEMAX SM [Concomitant]
     Active Substance: LOTEPREDNOL ETABONATE
     Dosage: DROPS GEL

REACTIONS (2)
  - Eye pain [Unknown]
  - Panic attack [Unknown]
